FAERS Safety Report 14352518 (Version 5)
Quarter: 2018Q1

REPORT INFORMATION
  Report Type: Spontaneous
  Country: IT (occurrence: IT)
  Receive Date: 20180104
  Receipt Date: 20180306
  Transmission Date: 20180509
  Serious: Yes (Other)
  Sender: FDA-Public Use
  Company Number: IT-SA-2017SA263163

PATIENT
  Age: 70 Year
  Sex: Male

DRUGS (14)
  1. OXALIPLATIN. [Suspect]
     Active Substance: OXALIPLATIN
     Indication: ADENOCARCINOMA OF COLON
     Dosage: FREQUENCY: EVERY 6 WEEKS?ON DAY 1, FOR 7 CYCLES
     Route: 065
  2. FLUOROURACIL. [Suspect]
     Active Substance: FLUOROURACIL
     Indication: ADENOCARCINOMA OF COLON
     Dosage: FORM: INFUSION?D1:400/MG/M^2, THEN 2400 MG/M^2
     Route: 040
     Dates: start: 201410, end: 201501
  3. IRINOTECAN HYDROCHLORIDE. [Suspect]
     Active Substance: IRINOTECAN HYDROCHLORIDE
     Indication: ADENOCARCINOMA OF COLON
     Dosage: 180 MG/M2, Q2WK
     Route: 065
     Dates: start: 201410, end: 201501
  4. LEUCOVORIN. [Suspect]
     Active Substance: LEUCOVORIN
     Indication: ADENOCARCINOMA OF COLON
     Dosage: FORM:INFUSION
     Route: 065
     Dates: start: 201501, end: 201501
  5. PANITUMUMAB [Suspect]
     Active Substance: PANITUMUMAB
     Indication: ADENOCARCINOMA OF COLON
     Dosage: 60 % OF ORIGNAL DOSE
     Route: 042
     Dates: start: 201506, end: 201506
  6. BEVACIZUMAB. [Suspect]
     Active Substance: BEVACIZUMAB
     Indication: ADENOCARCINOMA OF COLON
     Dosage: ON D1 OF THE 3-WEEKLY CYCLE, FOR 7 CYCLES
     Route: 065
     Dates: start: 201312, end: 201312
  7. IRINOTECAN HYDROCHLORIDE. [Suspect]
     Active Substance: IRINOTECAN HYDROCHLORIDE
     Indication: OFF LABEL USE
     Dosage: 180 MG/M2, Q2WK
     Route: 065
     Dates: start: 201410, end: 201501
  8. IRINOTECAN [Suspect]
     Active Substance: IRINOTECAN
     Indication: ADENOCARCINOMA OF COLON
     Dosage: 180 MG/M2, 2X A WEEK
     Route: 065
     Dates: start: 201410, end: 201410
  9. OXALIPLATIN. [Suspect]
     Active Substance: OXALIPLATIN
     Indication: ADENOCARCINOMA OF COLON
     Dosage: FREQUENCY: EVERY 6 WEEKS?ON DAY 1, FOR 7 CYCLES
     Route: 065
     Dates: start: 201204
  10. CAPECITABINE. [Suspect]
     Active Substance: CAPECITABINE
     Indication: ADENOCARCINOMA OF COLON
     Dosage: ON D1-14 Q3W, FOR 7 CYCLES?REDUCED
     Route: 065
     Dates: start: 201204, end: 201312
  11. LEUCOVORIN. [Suspect]
     Active Substance: LEUCOVORIN
     Indication: ADENOCARCINOMA OF COLON
     Dosage: FORM:INFUSION
     Route: 065
     Dates: start: 201410, end: 201410
  12. BEVACIZUMAB. [Suspect]
     Active Substance: BEVACIZUMAB
     Indication: ADENOCARCINOMA OF COLON
     Dosage: ON D1 OF THE 3-WEEKLY CYCLE, FOR 7 CYCLES
     Route: 065
     Dates: start: 201204, end: 201204
  13. PANITUMUMAB [Suspect]
     Active Substance: PANITUMUMAB
     Indication: ADENOCARCINOMA OF COLON
     Route: 065
     Dates: start: 201410
  14. IRINOTECAN [Suspect]
     Active Substance: IRINOTECAN
     Indication: ADENOCARCINOMA OF COLON
     Route: 065
     Dates: start: 201501, end: 201501

REACTIONS (8)
  - Neuropathy peripheral [Unknown]
  - Asthenia [Unknown]
  - Skin toxicity [Unknown]
  - Drug effective for unapproved indication [Unknown]
  - Neutropenia [Unknown]
  - Diarrhoea [Unknown]
  - Palmar-plantar erythrodysaesthesia syndrome [Unknown]
  - Off label use [Unknown]

NARRATIVE: CASE EVENT DATE: 2015
